FAERS Safety Report 8506022-3 (Version None)
Quarter: 2012Q3

REPORT INFORMATION
  Report Type: 
  Country: None (occurrence: None)
  Receive Date: 20120712
  Receipt Date: 20120709
  Transmission Date: 20120928
  Serious: Yes (Death)
  Sender: FDA-Public Use
  Company Number: GB-B.I. PHARMACEUTICALS,INC./RIDGEFIELD-2012-UK-00551UK

PATIENT
  Sex: Male
  Weight: 69 kg

DRUGS (5)
  1. DIGOXIN [Concomitant]
     Indication: ATRIAL FIBRILLATION
     Dosage: 250 MCG
     Route: 048
  2. ENOXAPARIN SODIUM [Suspect]
  3. PRADAXA [Suspect]
     Indication: ATRIAL FIBRILLATION
     Dosage: 150 MG
     Route: 048
     Dates: start: 20110601
  4. SIMVASTATIN [Concomitant]
     Indication: ATRIAL FIBRILLATION
     Dosage: 40 MG
     Route: 048
  5. BISOPROLOL FUMARATE [Concomitant]
     Indication: ATRIAL FIBRILLATION
     Dosage: 2.5 MCG
     Route: 048

REACTIONS (3)
  - TRAUMATIC HAEMORRHAGE [None]
  - FALL [None]
  - DRUG PRESCRIBING ERROR [None]
